FAERS Safety Report 24213070 (Version 31)
Quarter: 2025Q2

REPORT INFORMATION
  Report Type: Report from Study
  Country: CO (occurrence: CO)
  Receive Date: 20240815
  Receipt Date: 20250617
  Transmission Date: 20250717
  Serious: Yes (Hospitalization, Other)
  Sender: TAKEDA
  Company Number: CO-TAKEDA-2024TUS064188

PATIENT
  Age: 1 Year
  Sex: Female
  Weight: 7 kg

DRUGS (4)
  1. TEDUGLUTIDE [Suspect]
     Active Substance: TEDUGLUTIDE
     Indication: Short-bowel syndrome
     Dosage: 0.4 MILLIGRAM, QD
     Dates: start: 20240624
  2. TEDUGLUTIDE [Suspect]
     Active Substance: TEDUGLUTIDE
  3. TEDUGLUTIDE [Suspect]
     Active Substance: TEDUGLUTIDE
  4. TEDUGLUTIDE [Suspect]
     Active Substance: TEDUGLUTIDE

REACTIONS (16)
  - Device related sepsis [Unknown]
  - Fungal infection [Unknown]
  - Intestinal dilatation [Unknown]
  - Bowel movement irregularity [Unknown]
  - Pyrexia [Not Recovered/Not Resolved]
  - Vascular device infection [Unknown]
  - Malnutrition [Unknown]
  - Diarrhoea [Unknown]
  - Malabsorption [Unknown]
  - Intestinal obstruction [Unknown]
  - Infection [Unknown]
  - Insurance issue [Unknown]
  - Product use issue [Unknown]
  - Product prescribing error [Unknown]
  - Incorrect dose administered [Recovered/Resolved]
  - Treatment noncompliance [Unknown]

NARRATIVE: CASE EVENT DATE: 20240624
